FAERS Safety Report 11224004 (Version 1)
Quarter: 2015Q2

REPORT INFORMATION
  Report Type: Report from Study
  Country: IN (occurrence: IN)
  Receive Date: 20150629
  Receipt Date: 20150629
  Transmission Date: 20150821
  Serious: Yes (Death)
  Sender: FDA-Public Use
  Company Number: PHHY2015IN076746

PATIENT
  Sex: Male

DRUGS (1)
  1. GLIVEC [Suspect]
     Active Substance: IMATINIB MESYLATE
     Indication: CHRONIC MYELOID LEUKAEMIA
     Dosage: 600 MG, QD (PER DAY)
     Route: 065

REACTIONS (5)
  - Cytopenia [Fatal]
  - Blast crisis in myelogenous leukaemia [Fatal]
  - General physical health deterioration [Unknown]
  - Hypoalbuminaemia [Fatal]
  - Therapeutic response decreased [Unknown]
